FAERS Safety Report 4287417-3 (Version None)
Quarter: 2004Q1

REPORT INFORMATION
  Report Type: 
  Country: None (occurrence: None)
  Receive Date: 20040205
  Receipt Date: 20040115
  Transmission Date: 20041129
  Serious: Yes (Death)
  Sender: FDA-Public Use
  Company Number: USA030640332

PATIENT
  Age: 46 Year
  Sex: Male

DRUGS (4)
  1. ZYPREXA [Suspect]
     Indication: BIPOLAR DISORDER
     Dosage: 30 MG/DAY
  2. ZYPREXA [Suspect]
     Indication: SCHIZOAFFECTIVE DISORDER
     Dosage: 30 MG/DAY
  3. GABAPENTIN [Concomitant]
  4. TRAZODONE HCL [Concomitant]

REACTIONS (8)
  - ARRHYTHMIA [None]
  - ATHEROSCLEROSIS [None]
  - FOOD CRAVING [None]
  - INSOMNIA [None]
  - SLEEP DISORDER [None]
  - SOMNOLENCE [None]
  - VASCULAR OCCLUSION [None]
  - WEIGHT INCREASED [None]
